FAERS Safety Report 12188311 (Version 1)
Quarter: 2016Q1

REPORT INFORMATION
  Report Type: Spontaneous
  Country: US (occurrence: US)
  Receive Date: 20160317
  Receipt Date: 20160317
  Transmission Date: 20160526
  Serious: Yes (Other)
  Sender: FDA-Public Use
  Company Number: US-PFIZER INC-2016153140

PATIENT
  Age: 44 Year
  Sex: Female
  Weight: 73 kg

DRUGS (2)
  1. PREMARIN [Suspect]
     Active Substance: ESTROGENS, CONJUGATED
     Indication: VULVOVAGINAL DRYNESS
     Dosage: 0.5 MG, THREE TIMES A WEEK
     Route: 067
     Dates: start: 201512, end: 20160123
  2. PROZAC [Concomitant]
     Active Substance: FLUOXETINE HYDROCHLORIDE
     Indication: PAIN
     Dosage: 10 MG, DAILY

REACTIONS (5)
  - Bladder pain [Recovering/Resolving]
  - Vulvovaginal discomfort [Unknown]
  - Bladder discomfort [Recovering/Resolving]
  - Cystitis [Recovering/Resolving]
  - Drug effect incomplete [Unknown]

NARRATIVE: CASE EVENT DATE: 201512
